FAERS Safety Report 9410228 (Version 3)
Quarter: 2013Q3

REPORT INFORMATION
  Report Type: Spontaneous
  Country: US (occurrence: US)
  Receive Date: 20130719
  Receipt Date: 20130829
  Transmission Date: 20140515
  Serious: Yes (Other)
  Sender: FDA-Public Use
  Company Number: ALCN2013US000540

PATIENT
  Age: 82 Year
  Sex: Female

DRUGS (8)
  1. AZOPT [Suspect]
     Indication: GLAUCOMA
     Dosage: 1 GTT, BID
     Route: 047
  2. AZOPT [Suspect]
     Dosage: 1 GTT, BID
     Route: 047
     Dates: start: 20130615, end: 20130703
  3. TRAVATAN Z [Suspect]
     Indication: GLAUCOMA
     Dosage: 1 GTT, QD
     Route: 047
     Dates: start: 2011
  4. RESTASIS [Concomitant]
     Dosage: 1 GTT, BID
     Route: 047
     Dates: start: 2012
  5. CARBIDOPA/LEVODOPA [Concomitant]
     Indication: PARKINSON^S DISEASE
     Dosage: UNK
     Route: 048
     Dates: start: 1995
  6. COMTAN [Concomitant]
     Indication: PARKINSON^S DISEASE
     Dosage: 200 MG, UNK
     Route: 048
     Dates: start: 2000
  7. MIRAPEX [Concomitant]
     Indication: PARKINSON^S DISEASE
     Dosage: 1 MG, UNK
     Dates: start: 2000
  8. PRESERVATIVE FREE MOISTURE EYES-LUBRICANT EYE DROPS ARTIFICAL TEARS [Concomitant]
     Dosage: UNK

REACTIONS (5)
  - Decreased activity [Recovered/Resolved]
  - Blood pressure increased [Recovered/Resolved]
  - Drug effect decreased [Recovered/Resolved]
  - Asthenia [Recovered/Resolved]
  - Musculoskeletal stiffness [Recovered/Resolved]
